FAERS Safety Report 20503231 (Version 1)
Quarter: 2022Q1

REPORT INFORMATION
  Report Type: Spontaneous
  Country: US (occurrence: US)
  Receive Date: 20220222
  Receipt Date: 20220222
  Transmission Date: 20220423
  Serious: Yes (Other)
  Sender: FDA-Public Use
  Company Number: US-TAKEDA-2022TUS011583

PATIENT
  Age: 73 Year
  Sex: Male

DRUGS (7)
  1. MIDODRINE [Suspect]
     Active Substance: MIDODRINE
     Indication: Spinal cord injury
     Dosage: 70 MILLIGRAM, QD
     Route: 065
  2. MIDODRINE [Suspect]
     Active Substance: MIDODRINE
     Dosage: 5 MILLIGRAM, TID
     Route: 065
  3. DROXIDOPA [Concomitant]
     Active Substance: DROXIDOPA
     Indication: Adjuvant therapy
     Dosage: 100 MILLIGRAM, BID
     Route: 065
  4. DROXIDOPA [Concomitant]
     Active Substance: DROXIDOPA
     Dosage: 300 MILLIGRAM, TID
     Route: 065
  5. DROXIDOPA [Concomitant]
     Active Substance: DROXIDOPA
     Dosage: 20 MILLIGRAM, TID
     Route: 065
  6. DROXIDOPA [Concomitant]
     Active Substance: DROXIDOPA
     Dosage: 600 MILLIGRAM, TID
     Route: 065
  7. DROXIDOPA [Concomitant]
     Active Substance: DROXIDOPA
     Dosage: 400 MILLIGRAM, TID
     Route: 065

REACTIONS (1)
  - Bradycardia [Unknown]
